FAERS Safety Report 6617078-7 (Version None)
Quarter: 2010Q1

REPORT INFORMATION
  Report Type: 
  Country: None (occurrence: None)
  Receive Date: 20100307
  Receipt Date: 20100222
  Transmission Date: 20100710
  Serious: Yes (Other)
  Sender: FDA-Public Use
  Company Number: AT-BRISTOL-MYERS SQUIBB COMPANY-15005218

PATIENT
  Age: 13 Year
  Sex: Male

DRUGS (3)
  1. ETOPOSIDE [Suspect]
     Indication: ACUTE PROMYELOCYTIC LEUKAEMIA
  2. CYTARABINE [Suspect]
     Indication: ACUTE PROMYELOCYTIC LEUKAEMIA
     Dosage: 1 DF= SIX DOSES OF CYTARABINE 3 G/M2 AND FOUR DOSES OF CYTARABINE 40 MG I.T.
     Route: 037
  3. ALL-TRANS-RETINOIC ACID [Suspect]
     Indication: ACUTE PROMYELOCYTIC LEUKAEMIA

REACTIONS (3)
  - ACUTE RESPIRATORY DISTRESS SYNDROME [None]
  - PANCYTOPENIA [None]
  - SEPTIC SHOCK [None]
